FAERS Safety Report 7416925-9 (Version None)
Quarter: 2011Q2

REPORT INFORMATION
  Report Type: 
  Country: None (occurrence: None)
  Receive Date: 20110407
  Receipt Date: 20110325
  Transmission Date: 20111010
  Serious: Yes (Hospitalization)
  Sender: FDA-Public Use
  Company Number: UTC-005942

PATIENT
  Age: 1 Month
  Sex: Female

DRUGS (2)
  1. MEROPENEM [Suspect]
     Indication: PROPHYLAXIS
     Dates: start: 20110311
  2. REMODULIN [Suspect]
     Indication: PULMONARY HYPERTENSION
     Dosage: SUBCUTANEOUS
     Route: 058
     Dates: start: 20110301

REACTIONS (2)
  - DRUG INTERACTION [None]
  - ANAPHYLACTIC SHOCK [None]
